FAERS Safety Report 5536941-1 (Version None)
Quarter: 2007Q4

REPORT INFORMATION
  Report Type: 
  Country: None (occurrence: None)
  Receive Date: 20071207
  Receipt Date: 20071130
  Transmission Date: 20080405
  Serious: Yes (Hospitalization)
  Sender: FDA-Public Use
  Company Number: PHFR2007GB03496

PATIENT
  Age: 69 Year
  Sex: Female
  Weight: 83 kg

DRUGS (3)
  1. GLEEVEC [Suspect]
     Indication: GASTROINTESTINAL STROMAL TUMOUR
     Dosage: 400MG/DAY
     Route: 048
     Dates: start: 20040501
  2. ATENOLOL [Concomitant]
     Indication: HYPERTENSION
     Dosage: 50MG/DAY
     Route: 048
     Dates: start: 20040101
  3. BENDROFLUAZIDE [Concomitant]
     Indication: HYPERTENSION
     Dosage: 2.5MG/DAY
     Route: 048
     Dates: start: 20040101, end: 20071009

REACTIONS (1)
  - CEREBRAL INFARCTION [None]
